FAERS Safety Report 8358356-3 (Version None)
Quarter: 2012Q2

REPORT INFORMATION
  Report Type: 
  Country: None (occurrence: None)
  Receive Date: 20120514
  Receipt Date: 20110502
  Transmission Date: 20120825
  Serious: No
  Sender: FDA-Public Use
  Company Number: US-ALEXION-A201100636

PATIENT

DRUGS (5)
  1. SOLIRIS [Suspect]
     Dosage: 900 MG, Q12 DAYS
     Route: 042
  2. NEXIUM [Concomitant]
     Indication: GASTROOESOPHAGEAL REFLUX DISEASE
     Dosage: 40 MG, QD
     Route: 048
  3. EXJADE [Concomitant]
     Indication: HAEMOGLOBIN ABNORMAL
     Dosage: 1500 MG, QD
     Route: 048
  4. LUNESTA [Concomitant]
     Indication: INSOMNIA
     Dosage: 3 MG, QD
     Route: 048
  5. SOLIRIS [Suspect]
     Indication: PAROXYSMAL NOCTURNAL HAEMOGLOBINURIA
     Dosage: 600 MG, UNK
     Route: 042
     Dates: start: 20100801

REACTIONS (2)
  - HAEMOGLOBIN DECREASED [None]
  - HEADACHE [None]
